FAERS Safety Report 8841396 (Version 3)
Quarter: 2012Q4

REPORT INFORMATION
  Report Type: 
  Country: US (occurrence: US)
  Receive Date: 20121015
  Receipt Date: 20121105
  Transmission Date: 20130627
  Serious: Yes (Death, Hospitalization, Other)
  Sender: FDA-Public Use
  Company Number: US-ASTELLAS-2012US010094

PATIENT
  Age: 71 Year
  Sex: Female

DRUGS (5)
  1. TARCEVA [Suspect]
     Indication: PRODUCT USED FOR UNKNOWN INDICATION
     Dosage: 100 mg, UID/QD
     Route: 048
     Dates: start: 200807
  2. PLAVIX [Concomitant]
     Indication: PRODUCT USED FOR UNKNOWN INDICATION
     Dosage: 75 mg, Unknown/D
     Route: 048
  3. SPIRIVA [Concomitant]
     Indication: CHRONIC OBSTRUCTIVE PULMONARY DISEASE
     Dosage: UNK
     Route: 065
  4. SINGULAIR [Concomitant]
     Indication: CHRONIC OBSTRUCTIVE PULMONARY DISEASE
     Dosage: UNK
     Route: 065
  5. PAXIL [Concomitant]
     Indication: DEPRESSION
     Dosage: 30 mg, Unknown/D
     Route: 048

REACTIONS (6)
  - Respiratory failure [Fatal]
  - Cor pulmonale chronic [Unknown]
  - Cardiac disorder [Fatal]
  - Dyspnoea [Unknown]
  - Interstitial lung disease [Fatal]
  - Haemothorax [Fatal]
